FAERS Safety Report 15281101 (Version 1)
Quarter: 2018Q3

REPORT INFORMATION
  Report Type: Spontaneous
  Country: US (occurrence: US)
  Receive Date: 20180731
  Receipt Date: 20180731
  Transmission Date: 20181010
  Serious: Yes (Hospitalization)
  Sender: FDA-Public Use
  Company Number: None

PATIENT
  Age: 33 Year
  Sex: Male

DRUGS (11)
  1. CALCIFEROL [Concomitant]
     Active Substance: ERGOCALCIFEROL
  2. METHOTREXATE. [Concomitant]
     Active Substance: METHOTREXATE
  3. HUMIRA [Suspect]
     Active Substance: ADALIMUMAB
     Indication: CROHN^S DISEASE
     Route: 058
     Dates: start: 20170802
  4. VITAMIN C [Concomitant]
     Active Substance: ASCORBIC ACID
  5. PREDNISONE. [Concomitant]
     Active Substance: PREDNISONE
  6. IRON TABS [Concomitant]
  7. FERROUS SULFATE. [Concomitant]
     Active Substance: FERROUS SULFATE
  8. FOLIC ACID. [Concomitant]
     Active Substance: FOLIC ACID
  9. FLINTSTONES CHW COMPLETE [Concomitant]
  10. ACID CONTROL [Concomitant]
     Active Substance: FAMOTIDINE
  11. OMEPRAZOLE. [Concomitant]
     Active Substance: OMEPRAZOLE

REACTIONS (1)
  - Epistaxis [None]
